FAERS Safety Report 8618059-4 (Version None)
Quarter: 2012Q3

REPORT INFORMATION
  Report Type: 
  Country: None (occurrence: None)
  Receive Date: 20120824
  Receipt Date: 20120222
  Transmission Date: 20120928
  Serious: No
  Sender: FDA-Public Use
  Company Number: US-ASTRAZENECA-2012SE09542

PATIENT
  Age: 56 Year
  Sex: Female
  Weight: 72.1 kg

DRUGS (21)
  1. SIMVASTATIN [Concomitant]
  2. ALBUTEROL [Concomitant]
  3. COREG [Concomitant]
  4. MELOXICAM [Concomitant]
  5. XANAX [Concomitant]
     Route: 048
  6. PLAVIX [Concomitant]
  7. ZESTRIL [Suspect]
     Dosage: GENERIC FORM, 20 MG DAILY
     Route: 048
  8. ALBUTEROL [Concomitant]
     Dosage: 90 MCG/INH 2 PUFFS PRN
     Route: 055
  9. ANTIVERT [Concomitant]
     Indication: DIZZINESS
     Dosage: 1 OR 2 QID PRN
     Route: 048
  10. MULTAQ [Concomitant]
  11. SINGULAIR [Concomitant]
     Route: 048
  12. PROVENTIL-HFA [Concomitant]
     Dosage: 90 MCG/INH 2 PUFFS QID PRN
  13. SYMBICORT [Suspect]
     Dosage: 160/4.5 MCG, BID
     Route: 055
  14. NITROGLYCERIN [Concomitant]
     Dosage: 1 TAB EVERY 5 MINUTES
  15. FLEXERIL [Concomitant]
  16. LIDAMANTLE [Concomitant]
  17. LYRICA [Concomitant]
     Route: 048
  18. ASPIRIN [Concomitant]
  19. NAPROSYN [Concomitant]
  20. PAXIL [Concomitant]
  21. PREDNISONE TAB [Concomitant]

REACTIONS (11)
  - WHEEZING [None]
  - CARDIAC DISORDER [None]
  - CONTUSION [None]
  - HYPOAESTHESIA [None]
  - FATIGUE [None]
  - PARAESTHESIA [None]
  - JOINT STIFFNESS [None]
  - DYSPNOEA EXERTIONAL [None]
  - ASTHMA [None]
  - OEDEMA PERIPHERAL [None]
  - ARTHRALGIA [None]
